FAERS Safety Report 7544032-3 (Version None)
Quarter: 2011Q2

REPORT INFORMATION
  Report Type: 
  Country: None (occurrence: None)
  Receive Date: 20110613
  Receipt Date: 20050804
  Transmission Date: 20111010
  Serious: Yes (Other)
  Sender: FDA-Public Use
  Company Number: PHHO2005CA12470

PATIENT
  Sex: Female

DRUGS (4)
  1. APO-AMITRIPTYLINE [Concomitant]
  2. SANDOSTATIN LAR [Suspect]
     Indication: CARCINOID TUMOUR
     Dosage: 20 MG, ONCE A MONTH
     Dates: start: 20050207
  3. PRILOSEC [Concomitant]
  4. ATIVAN [Concomitant]

REACTIONS (2)
  - EAR PAIN [None]
  - OSTEITIS [None]
